FAERS Safety Report 4418704-3 (Version None)
Quarter: 2004Q3

REPORT INFORMATION
  Report Type: 
  Country: None (occurrence: None)
  Receive Date: 20040809
  Receipt Date: 20031218
  Transmission Date: 20050211
  Serious: No
  Sender: FDA-Public Use
  Company Number: 20031102895

PATIENT
  Age: 37 Year
  Sex: Female

DRUGS (2)
  1. PAXIL [Suspect]
     Indication: ILL-DEFINED DISORDER
     Route: 048
  2. DURAGESIC [Suspect]
     Dosage: 100UGH SEE DOSAGE TEXT
     Route: 062
     Dates: start: 20031103

REACTIONS (7)
  - ANOREXIA [None]
  - ERYTHEMA [None]
  - PRURITUS [None]
  - SOMNOLENCE [None]
  - TREMOR [None]
  - VISION BLURRED [None]
  - WEIGHT DECREASED [None]
